FAERS Safety Report 9468345 (Version 2)
Quarter: 2013Q4

REPORT INFORMATION
  Report Type: Spontaneous
  Country: GB (occurrence: GB)
  Receive Date: 20130821
  Receipt Date: 20131125
  Transmission Date: 20140711
  Serious: Yes (Hospitalization)
  Sender: FDA-Public Use
  Company Number: GB-TEVA-425766ISR

PATIENT
  Age: 91 Year
  Sex: Female

DRUGS (6)
  1. TRIMETHOPRIM [Suspect]
     Indication: URINARY TRACT INFECTION
     Dosage: 400 MILLIGRAM DAILY;
     Route: 048
     Dates: start: 20130725, end: 20130727
  2. ATORVASTATIN [Concomitant]
  3. FOLIC ACID [Concomitant]
  4. RIVAROXABAN [Concomitant]
  5. RAMIPRIL [Concomitant]
  6. LEVOTHYROXINE [Concomitant]

REACTIONS (2)
  - Renal failure acute [Recovered/Resolved]
  - Confusional state [Unknown]
